FAERS Safety Report 23904284 (Version 3)
Quarter: 2024Q3

REPORT INFORMATION
  Report Type: Report from Study
  Country: CA (occurrence: CA)
  Receive Date: 20240527
  Receipt Date: 20240918
  Transmission Date: 20241017
  Serious: Yes (Other)
  Sender: JOHNSON AND JOHNSON
  Company Number: CA-JNJFOC-20240563021

PATIENT
  Age: 8 Year
  Sex: Male

DRUGS (2)
  1. REMICADE [Suspect]
     Active Substance: INFLIXIMAB
     Indication: Crohn^s disease
     Route: 042
     Dates: start: 20240521
  2. REMICADE [Suspect]
     Active Substance: INFLIXIMAB
     Dosage: FREQUENCY: 4 WEEKS
     Route: 041
     Dates: start: 20220328

REACTIONS (3)
  - Crohn^s disease [Unknown]
  - Haematochezia [Not Recovered/Not Resolved]
  - Abdominal pain [Not Recovered/Not Resolved]

NARRATIVE: CASE EVENT DATE: 20240501
